FAERS Safety Report 7968267-0 (Version None)
Quarter: 2011Q4

REPORT INFORMATION
  Report Type: 
  Country: None (occurrence: None)
  Receive Date: 20111209
  Receipt Date: 20111206
  Transmission Date: 20120403
  Serious: Yes (Death)
  Sender: FDA-Public Use
  Company Number: PHHY2011ES106770

PATIENT

DRUGS (4)
  1. CYCLOSPORINE [Suspect]
  2. PREDNISONE TAB [Concomitant]
     Dosage: UNK UKN, UNK
  3. CYCLOSPORINE [Suspect]
     Indication: COLITIS ULCERATIVE
     Dosage: UNK UKN, UNK
     Route: 048
  4. THIOPURINE [Concomitant]

REACTIONS (2)
  - PNEUMONIA [None]
  - DRUG INEFFECTIVE [None]
